FAERS Safety Report 5517267-9 (Version None)
Quarter: 2007Q4

REPORT INFORMATION
  Report Type: 
  Country: None (occurrence: None)
  Receive Date: 20071114
  Receipt Date: 20070924
  Transmission Date: 20080405
  Serious: No
  Sender: FDA-Public Use
  Company Number: A0683439A

PATIENT
  Age: 69 Year
  Sex: Male

DRUGS (2)
  1. COMMIT [Suspect]
     Dates: start: 20070921, end: 20070921
  2. PRILOSEC [Concomitant]

REACTIONS (5)
  - ANOREXIA [None]
  - HICCUPS [None]
  - MALAISE [None]
  - NAUSEA [None]
  - OBSESSIVE THOUGHTS [None]
